FAERS Safety Report 6004296-4 (Version None)
Quarter: 2008Q4

REPORT INFORMATION
  Report Type: 
  Country: None (occurrence: None)
  Receive Date: 20081216
  Receipt Date: 20081203
  Transmission Date: 20090506
  Serious: Yes (Other)
  Sender: FDA-Public Use
  Company Number: US-BIOGENIDEC-2008BI002561

PATIENT
  Age: 47 Year
  Sex: Male

DRUGS (3)
  1. TYSABRI [Suspect]
     Indication: MULTIPLE SCLEROSIS
     Route: 042
     Dates: start: 20050216, end: 20050216
  2. TYSABRI [Suspect]
     Route: 042
     Dates: start: 20070727, end: 20070921
  3. TYSABRI [Suspect]
     Route: 042
     Dates: start: 20080313

REACTIONS (5)
  - BRADYCARDIA [None]
  - DYSKINESIA [None]
  - FALL [None]
  - HEAD INJURY [None]
  - MULTIPLE SCLEROSIS RELAPSE [None]
